FAERS Safety Report 25771895 (Version 2)
Quarter: 2025Q3

REPORT INFORMATION
  Report Type: Report from Study
  Country: US (occurrence: US)
  Receive Date: 20250908
  Receipt Date: 20250909
  Transmission Date: 20251020
  Serious: Yes (Other)
  Sender: AMGEN
  Company Number: US-AMGEN-USASP2025174750

PATIENT
  Age: 63 Year
  Sex: Female

DRUGS (2)
  1. TEPEZZA [Suspect]
     Active Substance: TEPROTUMUMAB-TRBW
     Indication: Endocrine ophthalmopathy
     Dosage: UNK UNK, Q3WK (1 EVERY 3 WEEKS )
     Route: 040
     Dates: start: 20250708
  2. TEPEZZA [Suspect]
     Active Substance: TEPROTUMUMAB-TRBW
     Indication: Toxic goitre
     Dosage: UNK UNK, Q3WK, THIRD INFUSION (1 EVERY 3 WEEKS)
     Route: 040
     Dates: start: 20250828

REACTIONS (3)
  - Deafness [Unknown]
  - Weight decreased [Unknown]
  - Ear congestion [Recovered/Resolved]

NARRATIVE: CASE EVENT DATE: 20250101
